FAERS Safety Report 10614138 (Version 2)
Quarter: 2014Q4

REPORT INFORMATION
  Report Type: Spontaneous
  Country: VN (occurrence: VN)
  Receive Date: 20141128
  Receipt Date: 20141209
  Transmission Date: 20150529
  Serious: No
  Sender: FDA-Public Use
  Company Number: VN-009507513-1411VNM012384

PATIENT
  Age: 81 Year
  Sex: Female

DRUGS (1)
  1. FOSAMAX [Suspect]
     Active Substance: ALENDRONATE SODIUM
     Dosage: 1 TABLET ONCE A WEEK, 2 HOURS BEFORE MEAL TOGETHER WITH 100ML OF HOT WATER OR HOT TEA
     Route: 048
     Dates: start: 20140908, end: 2014

REACTIONS (5)
  - Pharyngeal haemorrhage [Recovered/Resolved]
  - Vasculitis [Recovered/Resolved]
  - Speech disorder [Recovered/Resolved]
  - Throat irritation [Recovered/Resolved]
  - Drug administration error [Unknown]

NARRATIVE: CASE EVENT DATE: 2014
